FAERS Safety Report 6904416-0 (Version None)
Quarter: 2010Q3

REPORT INFORMATION
  Report Type: 
  Country: None (occurrence: None)
  Receive Date: 20100804
  Receipt Date: 20090516
  Transmission Date: 20110219
  Serious: No
  Sender: FDA-Public Use
  Company Number: US-PFIZER INC-2009172810

PATIENT
  Sex: Female
  Weight: 68 kg

DRUGS (11)
  1. LYRICA [Suspect]
     Indication: FIBROMYALGIA
     Dosage: 75 MG, 2X/DAY
     Dates: start: 20080101
  2. CHANTIX [Suspect]
     Indication: SMOKING CESSATION THERAPY
     Dosage: UNK
  3. DARVOCET [Concomitant]
     Dosage: UNK
  4. ZANAFLEX [Concomitant]
     Dosage: UNK
  5. NEXIUM [Concomitant]
     Dosage: UNK
  6. COMBIVENT [Concomitant]
     Dosage: UNK
  7. ADVAIR DISKUS 100/50 [Concomitant]
     Dosage: UNK
  8. ALL OTHER THERAPEUTIC PRODUCTS [Concomitant]
     Dosage: UNK
  9. ALLEGRA D 24 HOUR [Concomitant]
     Dosage: UNK
  10. AMITRIPTYLINE [Concomitant]
     Dosage: UNK
  11. TRAMADOL [Concomitant]
     Dosage: UNK

REACTIONS (3)
  - INSOMNIA [None]
  - PELVIC HAEMORRHAGE [None]
  - PELVIC PAIN [None]
